FAERS Safety Report 11078996 (Version 1)
Quarter: 2015Q2

REPORT INFORMATION
  Report Type: Spontaneous
  Country: US (occurrence: None)
  Receive Date: 20150429
  Receipt Date: 20150429
  Transmission Date: 20150821
  Serious: Yes (Other)
  Sender: FDA-Public Use
  Company Number: None

PATIENT
  Age: 73 Year
  Sex: Female
  Weight: 50.5 kg

DRUGS (4)
  1. PREDNISONE. [Suspect]
     Active Substance: PREDNISONE
     Indication: PYREXIA
     Dosage: 10 MG TABLETS-TAPER SCHEDULE
     Route: 048
     Dates: start: 201411, end: 20150328
  2. PREDNISONE. [Suspect]
     Active Substance: PREDNISONE
     Indication: CHRONIC OBSTRUCTIVE PULMONARY DISEASE
     Dosage: 10 MG TABLETS-TAPER SCHEDULE
     Route: 048
     Dates: start: 201411, end: 20150328
  3. LEVAQUIN [Suspect]
     Active Substance: LEVOFLOXACIN
     Indication: CHRONIC OBSTRUCTIVE PULMONARY DISEASE
     Route: 048
     Dates: start: 20150316, end: 20150319
  4. LEVAQUIN [Suspect]
     Active Substance: LEVOFLOXACIN
     Indication: PYREXIA
     Route: 048
     Dates: start: 20150316, end: 20150319

REACTIONS (2)
  - Tendon pain [None]
  - Tendon rupture [None]

NARRATIVE: CASE EVENT DATE: 20150317
